FAERS Safety Report 15515332 (Version 1)
Quarter: 2018Q4

REPORT INFORMATION
  Report Type: Spontaneous
  Country: US (occurrence: US)
  Receive Date: 20181017
  Receipt Date: 20181017
  Transmission Date: 20190205
  Serious: No
  Sender: FDA-Public Use
  Company Number: US-009507513-1809USA012495

PATIENT
  Age: 54 Year
  Sex: Female
  Weight: 73.02 kg

DRUGS (6)
  1. MONTELUKAST SODIUM. [Concomitant]
     Active Substance: MONTELUKAST SODIUM
     Dosage: UNK
  2. GLIMEPIRIDE. [Concomitant]
     Active Substance: GLIMEPIRIDE
     Dosage: UNK
  3. METHOTREXATE. [Concomitant]
     Active Substance: METHOTREXATE
     Indication: PSORIASIS
     Dosage: UNK
  4. ASMANEX [Suspect]
     Active Substance: MOMETASONE FUROATE
     Indication: ASTHMA
     Dosage: 2 PUFFS, EVERY DAY (QD)
     Route: 055
     Dates: start: 20180401
  5. METFORMIN [Concomitant]
     Active Substance: METFORMIN HYDROCHLORIDE
     Dosage: UNK
  6. LOVASTATIN. [Concomitant]
     Active Substance: LOVASTATIN
     Dosage: UNK

REACTIONS (5)
  - Blood pressure increased [Unknown]
  - Circumstance or information capable of leading to medication error [Unknown]
  - Product dose omission [Unknown]
  - Fatigue [Recovering/Resolving]
  - Product quality issue [Unknown]

NARRATIVE: CASE EVENT DATE: 20180924
